FAERS Safety Report 6283478-0 (Version None)
Quarter: 2009Q3

REPORT INFORMATION
  Report Type: 
  Country: None (occurrence: None)
  Receive Date: 20090721
  Receipt Date: 20090721
  Transmission Date: 20100115
  Serious: Yes (Other)
  Sender: FDA-Public Use
  Company Number: None

PATIENT
  Age: 27 Year
  Sex: Female
  Weight: 81.6475 kg

DRUGS (1)
  1. SULFASALAZINE 500MG GREENSTONE [Suspect]
     Indication: ANKYLOSING SPONDYLITIS
     Dosage: 500MG 2X DAILY PO
     Route: 048
     Dates: start: 20090615, end: 20090713

REACTIONS (2)
  - DRUG HYPERSENSITIVITY [None]
  - VASCULITIS [None]
